FAERS Safety Report 20422379 (Version 3)
Quarter: 2024Q3

REPORT INFORMATION
  Report Type: Report from Study
  Country: US (occurrence: US)
  Receive Date: 20220203
  Receipt Date: 20240925
  Transmission Date: 20241016
  Serious: No
  Sender: GLAXOSMITHKLINE
  Company Number: US-GLAXOSMITHKLINE-US2022AMR016117

PATIENT
  Sex: Female

DRUGS (1)
  1. NIRAPARIB [Suspect]
     Active Substance: NIRAPARIB
     Indication: Ovarian cancer
     Dosage: 100 MG, QD
     Dates: start: 20220126, end: 20220205

REACTIONS (6)
  - Musculoskeletal stiffness [Unknown]
  - Pain [Unknown]
  - Movement disorder [Unknown]
  - Feeding disorder [Unknown]
  - Headache [Recovering/Resolving]
  - Off label use [Unknown]
